FAERS Safety Report 8798884 (Version 1)
Quarter: 2012Q4

REPORT INFORMATION
  Report Type: 
  Country: FI (occurrence: FI)
  Receive Date: 20120920
  Receipt Date: 20120920
  Transmission Date: 20130627
  Serious: Yes (Hospitalization)
  Sender: FDA-Public Use
  Company Number: FI-JNJFOC-20120907024

PATIENT

DRUGS (7)
  1. DOXORUBICIN [Suspect]
     Indication: MANTLE CELL LYMPHOMA
     Dosage: day 3 (R-CHOP cyles 1 and 3)
     Route: 042
  2. RITUXIMAB [Suspect]
     Indication: MANTLE CELL LYMPHOMA
     Dosage: day 1 (in R-CHOP in cycles 1 and 3 in R-AraC cycles 2)
     Route: 042
  3. CYCLOPHOSPHAMIDE [Suspect]
     Indication: MANTLE CELL LYMPHOMA
     Dosage: day 3 (in R-CHOP cycles 1 and 3 )
     Route: 042
  4. VINCRISTINE [Suspect]
     Indication: MANTLE CELL LYMPHOMA
     Dosage: (maximum dose of 2mg) day 3 (in R-CHOP cycle 1 and 3 )
     Route: 042
  5. PREDNISOLONE [Suspect]
     Indication: MANTLE CELL LYMPHOMA
     Dosage: days 3 to 7 (in R-CHOP cycles 1 and 3)
     Route: 048
  6. CYTARABINE [Suspect]
     Indication: MANTLE CELL LYMPHOMA
     Dosage: 3 hr infusion, 4 doses with 12 hr intervals on days 3-4 (R-AraC cycle 2 )
     Route: 042
  7. G-CSF [Concomitant]
     Indication: PRODUCT USED FOR UNKNOWN INDICATION
     Route: 065

REACTIONS (1)
  - Nephropathy toxic [Unknown]
